FAERS Safety Report 9369446 (Version 1)
Quarter: 2013Q2

REPORT INFORMATION
  Report Type: Spontaneous
  Country: US (occurrence: None)
  Receive Date: 20130625
  Receipt Date: 20130625
  Transmission Date: 20140414
  Serious: Yes (Other)
  Sender: FDA-Public Use
  Company Number: None

PATIENT
  Age: 70 Year
  Sex: Male
  Weight: 92.53 kg

DRUGS (2)
  1. ZOLPIDEM [Suspect]
     Indication: INSOMNIA
     Dates: start: 20130129, end: 20130219
  2. ZOLPIDEM [Suspect]
     Indication: INSOMNIA
     Dosage: 4 MG TO 5 MG
     Dates: start: 20130220, end: 20130610

REACTIONS (6)
  - Drug withdrawal syndrome [None]
  - Insomnia [None]
  - Wrong technique in drug usage process [None]
  - Anxiety [None]
  - Nausea [None]
  - Decreased appetite [None]
